FAERS Safety Report 23022192 (Version 1)
Quarter: 2023Q4

REPORT INFORMATION
  Report Type: Spontaneous
  Country: RU (occurrence: RU)
  Receive Date: 20231003
  Receipt Date: 20231003
  Transmission Date: 20240109
  Serious: Yes (Death, Life-Threatening)
  Sender: FDA-Public Use
  Company Number: RU-JNJFOC-20230972149

PATIENT
  Sex: Male
  Weight: 47 kg

DRUGS (5)
  1. SIRTURO [Suspect]
     Active Substance: BEDAQUILINE FUMARATE
     Indication: Tuberculosis
     Dosage: 0.4
     Route: 048
     Dates: start: 20230331, end: 20230605
  2. SIRTURO [Suspect]
     Active Substance: BEDAQUILINE FUMARATE
     Dosage: 0.2
     Route: 048
  3. DELAMANID [Suspect]
     Active Substance: DELAMANID
     Indication: Tuberculosis
     Dosage: 0.2
     Route: 065
     Dates: start: 20230331, end: 20230605
  4. LINEZOLID [Suspect]
     Active Substance: LINEZOLID
     Indication: Tuberculosis
     Dosage: 0.6
     Route: 065
     Dates: start: 20230331, end: 20230605
  5. CLOFAZIMINE [Suspect]
     Active Substance: CLOFAZIMINE
     Indication: Tuberculosis
     Dosage: 0.1
     Route: 065
     Dates: start: 20230331, end: 20230605

REACTIONS (1)
  - Tuberculosis [Fatal]
